FAERS Safety Report 10366966 (Version 1)
Quarter: 2014Q3

REPORT INFORMATION
  Report Type: Spontaneous
  Country: None (occurrence: US)
  Receive Date: 20140807
  Receipt Date: 20140807
  Transmission Date: 20150326
  Serious: No
  Sender: FDA-Public Use
  Company Number: 2013SP006005

PATIENT
  Age: 12 Year
  Sex: Female

DRUGS (4)
  1. LEVETIRACETAM. [Concomitant]
     Active Substance: LEVETIRACETAM
  2. VALPROATE [Concomitant]
     Active Substance: VALPROATE SODIUM
  3. LORAZEPAM. [Suspect]
     Active Substance: LORAZEPAM
  4. FOSPHENYTOIN SODIUM. [Suspect]
     Active Substance: FOSPHENYTOIN SODIUM
     Route: 065

REACTIONS (1)
  - Drug ineffective [Unknown]
